FAERS Safety Report 25984019 (Version 2)
Quarter: 2025Q4

REPORT INFORMATION
  Report Type: Report from Study
  Country: CA (occurrence: CA)
  Receive Date: 20251031
  Receipt Date: 20251113
  Transmission Date: 20260118
  Serious: Yes (Death, Hospitalization)
  Sender: ALEXION PHARMACEUTICALS
  Company Number: CA-AstraZeneca-CH-00920532A

PATIENT
  Age: 33 Year
  Sex: Female
  Weight: 88 kg

DRUGS (1)
  1. OLAPARIB [Suspect]
     Active Substance: OLAPARIB
     Indication: Breast cancer metastatic
     Dosage: 300 MILLIGRAM
     Dates: start: 20250317, end: 20250805

REACTIONS (6)
  - Thrombosis [Fatal]
  - Pain [Fatal]
  - Platelet count decreased [Fatal]
  - Neoplasm malignant [Fatal]
  - Full blood count abnormal [Unknown]
  - Platelet count abnormal [Unknown]

NARRATIVE: CASE EVENT DATE: 20250327
